FAERS Safety Report 8119910-7 (Version None)
Quarter: 2012Q1

REPORT INFORMATION
  Report Type: 
  Country: None (occurrence: None)
  Receive Date: 20120206
  Receipt Date: 20120206
  Transmission Date: 20120608
  Serious: Yes (Other)
  Sender: FDA-Public Use
  Company Number: None

PATIENT
  Sex: Female

DRUGS (2)
  1. ZYCLARA [Suspect]
     Indication: ACTINIC KERATOSIS
     Dosage: 1-2 PACKETS DAILY
     Dates: start: 20111203
  2. ZYCLARA [Suspect]
     Indication: ACTINIC KERATOSIS
     Dosage: 1-2 PACKETS DAILY
     Dates: start: 20120101, end: 20120113

REACTIONS (13)
  - CHILLS [None]
  - DRY SKIN [None]
  - ASTHENIA [None]
  - FACIAL PAIN [None]
  - ACTINIC KERATOSIS [None]
  - BLISTER [None]
  - FEELING ABNORMAL [None]
  - GAIT DISTURBANCE [None]
  - URTICARIA [None]
  - SKIN EXFOLIATION [None]
  - INFLUENZA LIKE ILLNESS [None]
  - FATIGUE [None]
  - SCAB [None]
